FAERS Safety Report 24789216 (Version 1)
Quarter: 2024Q4

REPORT INFORMATION
  Report Type: Spontaneous
  Country: US (occurrence: US)
  Receive Date: 20241230
  Receipt Date: 20241230
  Transmission Date: 20250115
  Serious: Yes (Death, Hospitalization, Other)
  Sender: ASTELLAS
  Company Number: US-ASTELLAS-2024-AER-028093

PATIENT
  Age: 62 Year
  Sex: Female

DRUGS (1)
  1. TACROLIMUS [Suspect]
     Active Substance: TACROLIMUS
     Indication: Lung transplant
     Route: 065

REACTIONS (5)
  - COVID-19 pneumonia [Fatal]
  - Respiratory failure [Fatal]
  - Achromobacter infection [Unknown]
  - Malacoplakia gastrointestinal [Unknown]
  - Bacteraemia [Unknown]
